FAERS Safety Report 4933386-X (Version None)
Quarter: 2006Q1

REPORT INFORMATION
  Report Type: 
  Country: None (occurrence: None)
  Receive Date: 20060306
  Receipt Date: 20060123
  Transmission Date: 20060701
  Serious: Yes (Hospitalization)
  Sender: FDA-Public Use
  Company Number: US-MERCK-0601USA02655

PATIENT
  Age: 59 Year
  Sex: Male
  Weight: 99 kg

DRUGS (6)
  1. VIOXX [Suspect]
     Indication: ARTHRITIS
     Route: 048
     Dates: start: 20021219, end: 20040810
  2. ZOCOR [Concomitant]
     Route: 065
  3. ASPIRIN [Concomitant]
     Route: 065
  4. VITAMIN E [Concomitant]
     Route: 065
  5. ASCORBIC ACID [Concomitant]
     Route: 065
  6. CHLORA-TABS [Concomitant]
     Route: 065

REACTIONS (23)
  - ARRHYTHMIA [None]
  - BUNDLE BRANCH BLOCK [None]
  - BUNDLE BRANCH BLOCK RIGHT [None]
  - CARDIOMYOPATHY [None]
  - CENTRAL VENOUS PRESSURE INCREASED [None]
  - CONDUCTION DISORDER [None]
  - CONGESTIVE CARDIOMYOPATHY [None]
  - CORONARY ARTERY DISEASE [None]
  - CORONARY ARTERY OCCLUSION [None]
  - DILATATION ATRIAL [None]
  - DILATATION VENTRICULAR [None]
  - EJECTION FRACTION DECREASED [None]
  - ELECTROCARDIOGRAM POOR R-WAVE PROGRESSION [None]
  - ELECTROCARDIOGRAM QRS COMPLEX PROLONGED [None]
  - EXTRASYSTOLES [None]
  - HYPERLIPIDAEMIA [None]
  - HYPOAESTHESIA [None]
  - MITRAL VALVE INCOMPETENCE [None]
  - MYOCARDIAL INFARCTION [None]
  - SINUS DISORDER [None]
  - VENTRICULAR DYSFUNCTION [None]
  - VENTRICULAR EXTRASYSTOLES [None]
  - WEIGHT DECREASED [None]
